FAERS Safety Report 10537629 (Version 1)
Quarter: 2014Q4

REPORT INFORMATION
  Report Type: Spontaneous
  Country: NL (occurrence: None)
  Receive Date: 20141021
  Receipt Date: 20141021
  Transmission Date: 20150529
  Serious: Yes (Death, Hospitalization)
  Sender: FDA-Public Use
  Company Number: 2014SCAL000196

PATIENT
  Age: 70 Year
  Sex: Female

DRUGS (3)
  1. PROPOFOL. [Concomitant]
     Active Substance: PROPOFOL
  2. METHYLENE BLUE. [Suspect]
     Active Substance: METHYLENE BLUE
     Indication: PRODUCT USED FOR UNKNOWN INDICATION
     Route: 042
  3. VENLAFAXINE HYDROCHLORIDE. [Suspect]
     Active Substance: VENLAFAXINE HYDROCHLORIDE
     Indication: AFFECTIVE DISORDER

REACTIONS (17)
  - Salivary hypersecretion [None]
  - Serotonin syndrome [None]
  - Haemodynamic instability [None]
  - Clonus [None]
  - Neuromyopathy [None]
  - Drug interaction [None]
  - Opisthotonus [None]
  - Mental status changes [None]
  - Hyperhidrosis [None]
  - Hyperthermia [None]
  - Dysarthria [None]
  - Epilepsy [None]
  - Agitation [None]
  - Mydriasis [None]
  - Hyperreflexia [None]
  - Circulatory collapse [None]
  - Depressed level of consciousness [None]
